FAERS Safety Report 22597110 (Version 2)
Quarter: 2024Q1

REPORT INFORMATION
  Report Type: Report from Study
  Country: BR (occurrence: BR)
  Receive Date: 20230613
  Receipt Date: 20240117
  Transmission Date: 20240409
  Serious: Yes (Other)
  Sender: FDA-Public Use
  Company Number: BR-CELLTRION INC.-2022BR018253

PATIENT

DRUGS (16)
  1. INFLIXIMAB [Suspect]
     Active Substance: INFLIXIMAB
     Indication: Rheumatoid arthritis
     Dosage: 2 AMPOULES EVERY 4 WEEKS
     Route: 042
     Dates: start: 20220830
  2. INFLIXIMAB [Suspect]
     Active Substance: INFLIXIMAB
     Dosage: UNK
     Dates: start: 20231121
  3. FLUOXETINE [Concomitant]
     Active Substance: FLUOXETINE HYDROCHLORIDE
     Indication: Depression
     Dosage: 3 CAPSULES DAY
     Route: 048
  4. RIVOTRIL [Concomitant]
     Active Substance: CLONAZEPAM
     Indication: Depression
     Route: 048
  5. PREDNISONE [Concomitant]
     Active Substance: PREDNISONE
     Indication: Arthritis
     Dosage: 1 CAPSULE DAY
     Route: 048
  6. LEFLUNOMIDE [Concomitant]
     Active Substance: LEFLUNOMIDE
     Indication: Rheumatoid arthritis
     Dosage: 1 CAPSULE DAY
     Route: 048
  7. PREGABALIN [Concomitant]
     Active Substance: PREGABALIN
     Indication: Depression
     Dosage: 1 CAPSULE DAY
     Route: 048
  8. PREGABALIN [Concomitant]
     Active Substance: PREGABALIN
     Indication: Fibromyalgia
  9. BUDESONIDE\FORMOTEROL FUMARATE [Concomitant]
     Active Substance: BUDESONIDE\FORMOTEROL FUMARATE
     Indication: Bronchitis
     Dosage: 1 OR 2 INHALATIONS A DAY
  10. CLONAZEPAM [Concomitant]
     Active Substance: CLONAZEPAM
     Indication: Anxiety
     Dosage: 3 OR 4 TABLETS A DAY FOR ANXIETY ATTACK (SHE REPORTS THAT THE DOCTOR ASKS HER TO REDUCE HER USE, BUT
  11. GABAPENTIN [Concomitant]
     Active Substance: GABAPENTIN
     Indication: Fibromyalgia
     Dosage: 2 TABLETS A DAY
  12. CODEINE [Concomitant]
     Active Substance: CODEINE
     Indication: Fibromyalgia
     Dosage: 2 TABLETS A DAY
  13. METFORMIN [Concomitant]
     Active Substance: METFORMIN HYDROCHLORIDE
     Indication: Diabetes mellitus
     Dosage: 2 TABLETS A DAY
  14. TRAMADOL [Concomitant]
     Active Substance: TRAMADOL\TRAMADOL HYDROCHLORIDE
     Indication: Pain
     Dosage: FROM TIME TO TIME
  15. AMOXICILLIN [Concomitant]
     Active Substance: AMOXICILLIN
     Indication: Pneumonia
     Dosage: 1 TABLET A DAY
  16. MORPHINE [Concomitant]
     Active Substance: MORPHINE
     Indication: Pain
     Dosage: 1 PATCH A WEEK

REACTIONS (7)
  - Depression suicidal [Unknown]
  - Panic attack [Unknown]
  - Eye pain [Unknown]
  - Pain [Unknown]
  - Hypertension [Unknown]
  - Anxiety [Unknown]
  - Drug hypersensitivity [Unknown]
